FAERS Safety Report 14092287 (Version 1)
Quarter: 2017Q4

REPORT INFORMATION
  Report Type: Spontaneous
  Country: US (occurrence: US)
  Receive Date: 20171015
  Receipt Date: 20171015
  Transmission Date: 20180321
  Serious: Yes (Hospitalization)
  Sender: FDA-Public Use
  Company Number: None

PATIENT
  Age: 75 Year
  Sex: Female
  Weight: 75.15 kg

DRUGS (16)
  1. TEGRETOL [Concomitant]
     Active Substance: CARBAMAZEPINE
  2. VITAMIN D3 [Concomitant]
     Active Substance: CHOLECALCIFEROL
  3. HYDROCODONE BITARTRATE AND ACETAMINOPHEN [Concomitant]
     Active Substance: ACETAMINOPHEN\HYDROCODONE BITARTRATE
  4. MELOXICAM. [Concomitant]
     Active Substance: MELOXICAM
  5. ZINC. [Concomitant]
     Active Substance: ZINC
  6. TRIPLE MAGNESIUM COMPLEX [Concomitant]
  7. RECLAST [Suspect]
     Active Substance: ZOLEDRONIC ACID
     Indication: OSTEITIS DEFORMANS
     Dosage: OTHER FREQUENCY:1 A YEAR;?INTRAVENOUS (NOT OTHERWISE SPECIFIED)
     Route: 042
     Dates: start: 20160922, end: 20170926
  8. BACLOFEN. [Concomitant]
     Active Substance: BACLOFEN
  9. RED YEAST RICE [Concomitant]
     Active Substance: DIETARY SUPPLEMENT
  10. B6 [Concomitant]
     Active Substance: PYRIDOXINE HYDROCHLORIDE
  11. FOLIC ACID. [Concomitant]
     Active Substance: FOLIC ACID
  12. AMITRIPTYLINE HCL [Concomitant]
     Active Substance: AMITRIPTYLINE
  13. V-C [Concomitant]
  14. PROBIOTIC COMPLEX [Concomitant]
  15. CALCIUM [Concomitant]
     Active Substance: CALCIUM
  16. VITAMIN B12 [Concomitant]
     Active Substance: CYANOCOBALAMIN

REACTIONS (13)
  - Somnolence [None]
  - Bone pain [None]
  - Thirst [None]
  - Asthenia [None]
  - Syncope [None]
  - Feeling hot [None]
  - Hyperhidrosis [None]
  - Muscle twitching [None]
  - Fall [None]
  - Headache [None]
  - Dizziness [None]
  - Myalgia [None]
  - Fatigue [None]

NARRATIVE: CASE EVENT DATE: 20170928
